FAERS Safety Report 8306346-9 (Version None)
Quarter: 2012Q2

REPORT INFORMATION
  Report Type: 
  Country: None (occurrence: None)
  Receive Date: 20120423
  Receipt Date: 20120412
  Transmission Date: 20120825
  Serious: Yes (Other)
  Sender: FDA-Public Use
  Company Number: NO-BAXTER-2012BAX002852

PATIENT
  Age: 14 Year
  Sex: Male

DRUGS (10)
  1. TEMOZOLOMIDE [Suspect]
     Indication: MEDULLOBLASTOMA
  2. EXITOP KAPSLER 100 MG [Suspect]
     Indication: MEDULLOBLASTOMA
  3. LOMUSTINE [Suspect]
     Indication: MEDULLOBLASTOMA
  4. CISPLATIN [Suspect]
     Indication: MEDULLOBLASTOMA
  5. CARBOPLATIN [Suspect]
     Indication: MEDULLOBLASTOMA
  6. SENDOXAN 1000 MG PULVER TIL INJEKSJONSV?SKE, OPPL?SNING [Suspect]
     Indication: MEDULLOBLASTOMA
  7. CELECOXIB [Suspect]
     Indication: MEDULLOBLASTOMA
     Route: 048
  8. CYTARABINE [Suspect]
     Indication: MEDULLOBLASTOMA
  9. VINCRISTINE SULFATE [Suspect]
     Indication: MEDULLOBLASTOMA
  10. THALIDOMIDE [Suspect]
     Indication: MEDULLOBLASTOMA
     Route: 048

REACTIONS (12)
  - NEUROTOXICITY [None]
  - NEUTROPENIA [None]
  - COGNITIVE DISORDER [None]
  - FATIGUE [None]
  - VISUAL IMPAIRMENT [None]
  - ATAXIA [None]
  - COORDINATION ABNORMAL [None]
  - HYPOTHYROIDISM [None]
  - STOMATITIS [None]
  - DYSARTHRIA [None]
  - FEBRILE NEUTROPENIA [None]
  - SINUSITIS [None]
